FAERS Safety Report 9579430 (Version 2)
Quarter: 2013Q4

REPORT INFORMATION
  Report Type: Spontaneous
  Country: US (occurrence: US)
  Receive Date: 20131001
  Receipt Date: 20131001
  Transmission Date: 20140711
  Serious: No
  Sender: FDA-Public Use
  Company Number: US-AMGEN-USASP2013012471

PATIENT
  Age: 46 Year
  Sex: Female
  Weight: 99.77 kg

DRUGS (3)
  1. ENBREL [Suspect]
     Indication: PSORIASIS
     Dosage: 50 MG, TWICE A WEEK 72 HOURS APART
     Route: 058
     Dates: start: 20121112, end: 201302
  2. ATARAX                             /00058401/ [Concomitant]
     Dosage: 10 MG/5 ML
     Route: 048
  3. IBUPROFEN [Concomitant]
     Dosage: 200 MG, UNK
     Route: 048

REACTIONS (7)
  - Drug ineffective [Not Recovered/Not Resolved]
  - Psoriasis [Unknown]
  - Skin plaque [Not Recovered/Not Resolved]
  - Secretion discharge [Not Recovered/Not Resolved]
  - Pain [Not Recovered/Not Resolved]
  - Laceration [Not Recovered/Not Resolved]
  - Local swelling [Not Recovered/Not Resolved]
